FAERS Safety Report 21485550 (Version 4)
Quarter: 2023Q1

REPORT INFORMATION
  Report Type: Spontaneous
  Country: US (occurrence: US)
  Receive Date: 20221020
  Receipt Date: 20230202
  Transmission Date: 20230418
  Serious: Yes (Hospitalization, Other)
  Sender: FDA-Public Use
  Company Number: US-PROPHARMA-501

PATIENT
  Sex: Female

DRUGS (5)
  1. AYVAKIT [Suspect]
     Active Substance: AVAPRITINIB
     Indication: Systemic mastocytosis
     Route: 048
     Dates: start: 20211207
  2. AYVAKIT [Suspect]
     Active Substance: AVAPRITINIB
     Route: 065
     Dates: start: 20211207
  3. AYVAKIT [Suspect]
     Active Substance: AVAPRITINIB
     Route: 065
     Dates: start: 20211207
  4. ABILIFY [Concomitant]
     Active Substance: ARIPIPRAZOLE
     Indication: Depression
     Route: 065
  5. PROZAC [Concomitant]
     Active Substance: FLUOXETINE HYDROCHLORIDE
     Indication: Depression
     Route: 065

REACTIONS (11)
  - Hypersensitivity [Unknown]
  - Erythema [Unknown]
  - Dyspnoea [Unknown]
  - COVID-19 [Unknown]
  - Eye swelling [Recovered/Resolved]
  - Skin discolouration [Unknown]
  - Lip swelling [Recovered/Resolved]
  - Swelling [Unknown]
  - Hair colour changes [Unknown]
  - Depression [Recovering/Resolving]
  - Fatigue [Unknown]
